FAERS Safety Report 4926360-0 (Version None)
Quarter: 2006Q1

REPORT INFORMATION
  Report Type: 
  Country: None (occurrence: None)
  Receive Date: 20060228
  Receipt Date: 20051104
  Transmission Date: 20060701
  Serious: No
  Sender: FDA-Public Use
  Company Number: US-GLAXOSMITHKLINE-A0580931A

PATIENT
  Age: 44 Year
  Sex: Male

DRUGS (5)
  1. LAMICTAL [Suspect]
     Indication: EPILEPSY
     Route: 048
     Dates: end: 20051027
  2. DILANTIN [Concomitant]
  3. LEVSIN [Concomitant]
  4. LACTULOSE [Concomitant]
  5. CARBAMAZEPINE [Concomitant]

REACTIONS (1)
  - RASH [None]
